FAERS Safety Report 5866473-2 (Version None)
Quarter: 2008Q3

REPORT INFORMATION
  Report Type: 
  Country: None (occurrence: None)
  Receive Date: 20080902
  Receipt Date: 20080902
  Transmission Date: 20090109
  Serious: Yes (Death, Life-Threatening, Hospitalization)
  Sender: FDA-Public Use
  Company Number: PHEH1996US02044

PATIENT
  Sex: Male
  Weight: 92 kg

DRUGS (12)
  1. NEORAL [Suspect]
     Route: 048
     Dates: start: 19960120
  2. PREDNISONE TAB [Concomitant]
  3. IMURAN [Concomitant]
  4. ZOLOFT [Concomitant]
  5. LASIX [Concomitant]
  6. DILTIAZEM HCL [Concomitant]
  7. INSULIN [Concomitant]
  8. PRAVACHOL [Concomitant]
  9. BACTRIM [Concomitant]
  10. NYSTATIN [Concomitant]
  11. GLYBURIDE [Concomitant]
  12. DIGOXIN [Concomitant]

REACTIONS (7)
  - ACIDOSIS [None]
  - BLOOD CREATININE INCREASED [None]
  - CARDIAC ARREST [None]
  - DEATH [None]
  - DIALYSIS [None]
  - RENAL FAILURE ACUTE [None]
  - RESPIRATORY GAS EXCHANGE DISORDER [None]
